FAERS Safety Report 13866980 (Version 1)
Quarter: 2017Q3

REPORT INFORMATION
  Report Type: Spontaneous
  Country: US (occurrence: US)
  Receive Date: 20170814
  Receipt Date: 20170814
  Transmission Date: 20171127
  Serious: Yes (Other)
  Sender: FDA-Public Use
  Company Number: PHHY2017US118973

PATIENT
  Sex: Female

DRUGS (5)
  1. TEKTURNA [Suspect]
     Active Substance: ALISKIREN HEMIFUMARATE
     Dosage: 300 MG, BID (150 IN THE MORNING AND 150 MG IN THE EVENING)
     Route: 065
     Dates: start: 201705
  2. CLONIDINE. [Concomitant]
     Active Substance: CLONIDINE
     Indication: PRODUCT USED FOR UNKNOWN INDICATION
     Route: 065
  3. TEKTURNA [Suspect]
     Active Substance: ALISKIREN HEMIFUMARATE
     Dosage: 150 MG, QD
     Route: 065
     Dates: start: 20170802
  4. COZAAR [Concomitant]
     Active Substance: LOSARTAN POTASSIUM
     Indication: PRODUCT USED FOR UNKNOWN INDICATION
     Route: 065
  5. TEKTURNA [Suspect]
     Active Substance: ALISKIREN HEMIFUMARATE
     Indication: BLOOD PRESSURE ABNORMAL
     Dosage: 150 MG, QD
     Route: 065
     Dates: start: 201701

REACTIONS (9)
  - Walking disability [Unknown]
  - Sensory loss [Unknown]
  - Blood pressure systolic increased [Unknown]
  - Diarrhoea [Unknown]
  - Nausea [Unknown]
  - Abdominal pain upper [Unknown]
  - Pruritus [Unknown]
  - Systemic lupus erythematosus [Unknown]
  - Ear pruritus [Unknown]

NARRATIVE: CASE EVENT DATE: 2017
